FAERS Safety Report 24716195 (Version 8)
Quarter: 2025Q3

REPORT INFORMATION
  Report Type: Spontaneous
  Country: JP (occurrence: JP)
  Receive Date: 20241210
  Receipt Date: 20250730
  Transmission Date: 20251021
  Serious: Yes (Life-Threatening, Hospitalization, Disabling, Other)
  Sender: ASTELLAS
  Company Number: JP-ASTELLAS-2024-AER-001079

PATIENT
  Age: 69 Year
  Sex: Male
  Weight: 87 kg

DRUGS (30)
  1. VYLOY [Suspect]
     Active Substance: ZOLBETUXIMAB-CLZB
     Indication: Gastric cancer
     Route: 042
     Dates: start: 20240709
  2. VYLOY [Suspect]
     Active Substance: ZOLBETUXIMAB-CLZB
     Indication: Oesophageal carcinoma
     Route: 042
     Dates: start: 20240730
  3. VYLOY [Suspect]
     Active Substance: ZOLBETUXIMAB-CLZB
     Route: 042
     Dates: start: 20240827
  4. VYLOY [Suspect]
     Active Substance: ZOLBETUXIMAB-CLZB
     Route: 042
     Dates: start: 20240924
  5. VYLOY [Suspect]
     Active Substance: ZOLBETUXIMAB-CLZB
     Route: 042
     Dates: start: 20241022
  6. VYLOY [Suspect]
     Active Substance: ZOLBETUXIMAB-CLZB
     Route: 042
     Dates: start: 20241112
  7. OLMESARTAN MEDOXOMIL [Concomitant]
     Active Substance: OLMESARTAN MEDOXOMIL
     Indication: Product used for unknown indication
     Route: 048
  8. AZELNIDIPINE [Concomitant]
     Active Substance: AZELNIDIPINE
     Indication: Product used for unknown indication
     Route: 048
  9. SUVOREXANT [Concomitant]
     Active Substance: SUVOREXANT
     Indication: Product used for unknown indication
     Route: 048
  10. SPIRONOLACTONE [Concomitant]
     Active Substance: SPIRONOLACTONE
     Indication: Product used for unknown indication
     Route: 048
  11. FUROSEMIDE [Concomitant]
     Active Substance: FUROSEMIDE
     Indication: Product used for unknown indication
     Route: 048
  12. VONOPRAZAN [Concomitant]
     Active Substance: VONOPRAZAN
     Indication: Product used for unknown indication
     Route: 048
  13. URSODIOL [Concomitant]
     Active Substance: URSODIOL
     Indication: Product used for unknown indication
     Route: 048
  14. ESCITALOPRAM [Concomitant]
     Active Substance: ESCITALOPRAM OXALATE
     Indication: Product used for unknown indication
     Route: 048
  15. CAPECITABINE [Concomitant]
     Active Substance: CAPECITABINE
     Indication: Oesophageal carcinoma
     Route: 048
     Dates: start: 20240528
  16. CAPECITABINE [Concomitant]
     Active Substance: CAPECITABINE
     Route: 048
     Dates: start: 20240618
  17. CAPECITABINE [Concomitant]
     Active Substance: CAPECITABINE
     Route: 048
     Dates: start: 20240709
  18. CAPECITABINE [Concomitant]
     Active Substance: CAPECITABINE
     Route: 048
     Dates: start: 20240730
  19. CAPECITABINE [Concomitant]
     Active Substance: CAPECITABINE
     Route: 048
     Dates: start: 20240827
  20. CAPECITABINE [Concomitant]
     Active Substance: CAPECITABINE
     Route: 048
     Dates: start: 20240924
  21. CAPECITABINE [Concomitant]
     Active Substance: CAPECITABINE
     Route: 048
     Dates: start: 20241022
  22. CAPECITABINE [Concomitant]
     Active Substance: CAPECITABINE
     Route: 048
     Dates: start: 20241112
  23. OXALIPLATIN [Concomitant]
     Active Substance: OXALIPLATIN
     Indication: Oesophageal carcinoma
     Route: 048
     Dates: start: 20240528
  24. OXALIPLATIN [Concomitant]
     Active Substance: OXALIPLATIN
     Route: 048
     Dates: start: 20240618
  25. OXALIPLATIN [Concomitant]
     Active Substance: OXALIPLATIN
     Route: 048
     Dates: start: 20240709
  26. OXALIPLATIN [Concomitant]
     Active Substance: OXALIPLATIN
     Route: 048
     Dates: start: 20240730
  27. OXALIPLATIN [Concomitant]
     Active Substance: OXALIPLATIN
     Route: 048
     Dates: start: 20240827
  28. OXALIPLATIN [Concomitant]
     Active Substance: OXALIPLATIN
     Route: 048
     Dates: start: 20240924
  29. OXALIPLATIN [Concomitant]
     Active Substance: OXALIPLATIN
     Route: 048
     Dates: start: 20241022
  30. OXALIPLATIN [Concomitant]
     Active Substance: OXALIPLATIN
     Route: 048
     Dates: start: 20241112

REACTIONS (7)
  - COVID-19 [Recovered/Resolved]
  - Blood bilirubin increased [Recovering/Resolving]
  - Neutrophil count decreased [Recovered/Resolved]
  - Dizziness [Recovered/Resolved]
  - Cardiac failure [Recovering/Resolving]
  - Ascites [Not Recovered/Not Resolved]
  - Hepatic cirrhosis [Not Recovered/Not Resolved]
